FAERS Safety Report 6258639-7 (Version None)
Quarter: 2009Q3

REPORT INFORMATION
  Report Type: 
  Country: None (occurrence: None)
  Receive Date: 20090707
  Receipt Date: 20090702
  Transmission Date: 20100115
  Serious: Yes (Hospitalization)
  Sender: FDA-Public Use
  Company Number: US-BAYER-200924709NA

PATIENT
  Age: 78 Year
  Sex: Male
  Weight: 78 kg

DRUGS (16)
  1. SORAFENIB [Suspect]
     Indication: COLORECTAL CANCER METASTATIC
     Dosage: TOTAL DAILY DOSE: 400 MG  UNIT DOSE: 200 MG
     Route: 048
     Dates: start: 20090526, end: 20090613
  2. OXALIPLATIN [Suspect]
     Indication: COLORECTAL CANCER METASTATIC
     Dosage: AS USED: 85 MG/M2
     Route: 042
     Dates: start: 20090526, end: 20090526
  3. LEUCOVORIN CALCIUM [Suspect]
     Indication: COLORECTAL CANCER METASTATIC
     Dosage: AS USED: 400 MG/M2
     Route: 042
     Dates: start: 20090526, end: 20090526
  4. FLUOROURACIL [Suspect]
     Indication: COLORECTAL CANCER METASTATIC
     Dosage: AS USED: 2400 MG/M2
     Route: 042
     Dates: start: 20090526, end: 20090528
  5. FLUOROURACIL [Suspect]
     Dosage: AS USED: 400 MG/M2
     Route: 040
     Dates: start: 20090526, end: 20090526
  6. ASPIRIN [Concomitant]
  7. ATENOLOL [Concomitant]
  8. TAMSULOSIN HCL [Concomitant]
  9. LISINOPRIL [Concomitant]
  10. AMLODIPINE [Concomitant]
     Indication: HYPERTENSION
  11. METFORMIN HCL [Concomitant]
     Indication: TYPE 2 DIABETES MELLITUS
  12. SIMVASTATIN [Concomitant]
     Indication: HYPERLIPIDAEMIA
  13. ASCORBIC ACID [Concomitant]
     Indication: VITAMIN SUPPLEMENTATION
  14. TYLENOL (CAPLET) [Concomitant]
     Indication: PAIN
  15. DEXAMETHASONE [Concomitant]
     Dates: start: 20090609
  16. ONDANSETRON [Concomitant]
     Dates: start: 20090609

REACTIONS (1)
  - CELLULITIS [None]
